FAERS Safety Report 10076358 (Version 2)
Quarter: 2014Q2

REPORT INFORMATION
  Report Type: Spontaneous
  Country: JP (occurrence: JP)
  Receive Date: 20140414
  Receipt Date: 20140430
  Transmission Date: 20141212
  Serious: Yes (Other)
  Sender: FDA-Public Use
  Company Number: JP-PFIZER INC-2014098747

PATIENT
  Age: 43 Year
  Sex: Female

DRUGS (6)
  1. ZITHROMAC [Suspect]
     Dosage: 500 MG, 1X/DAY
     Route: 048
     Dates: start: 20140407, end: 20140407
  2. PL GRAN. [Concomitant]
     Dosage: UNK
     Route: 048
  3. TRANSAMIN [Concomitant]
     Dosage: UNK
     Route: 048
  4. MEDICON [Concomitant]
     Route: 048
  5. MUCODYNE [Concomitant]
     Dosage: UNK
     Route: 048
  6. BRUFEN [Concomitant]
     Dosage: UNK
     Route: 048

REACTIONS (3)
  - Loss of consciousness [Recovered/Resolved]
  - Blood pressure decreased [Recovered/Resolved]
  - Fall [Recovered/Resolved]
